FAERS Safety Report 7875035-7 (Version None)
Quarter: 2011Q4

REPORT INFORMATION
  Report Type: 
  Country: None (occurrence: None)
  Receive Date: 20111014
  Receipt Date: 20110502
  Transmission Date: 20120403
  Serious: Yes (Hospitalization)
  Sender: FDA-Public Use
  Company Number: 1000019281

PATIENT
  Age: 16 Year
  Sex: Male

DRUGS (4)
  1. LEXAPRO [Suspect]
     Indication: DEPRESSION
     Dosage: 10 MG (10 MG,1 IN 1 D),ORAL
     Route: 048
     Dates: start: 20100917, end: 20110217
  2. PRESCRIPTION DRUGS NOS (PRESCRIPTION DRUGS NOS) [Suspect]
     Dosage: ORAL
     Route: 048
     Dates: start: 20110101, end: 20110217
  3. OXYCONTIN [Suspect]
     Dosage: ORAL
     Route: 048
     Dates: start: 20110101, end: 20110217
  4. COLD MEDICATIONS NOS (COLD MEDICATIONS NOS) [Suspect]
     Dosage: ORAL
     Route: 048
     Dates: start: 20110101, end: 20110217

REACTIONS (2)
  - SUICIDE ATTEMPT [None]
  - INTENTIONAL OVERDOSE [None]
